FAERS Safety Report 20630082 (Version 1)
Quarter: 2022Q1

REPORT INFORMATION
  Report Type: Report from Study
  Country: CA (occurrence: CA)
  Receive Date: 20220324
  Receipt Date: 20220324
  Transmission Date: 20220423
  Serious: Yes (Other)
  Sender: FDA-Public Use
  Company Number: CA-ABBVIE-22K-028-4323401-00

PATIENT
  Age: 59 Year
  Sex: Female

DRUGS (1)
  1. RINVOQ [Suspect]
     Active Substance: UPADACITINIB
     Indication: Psoriatic arthropathy
     Route: 048
     Dates: start: 20220309

REACTIONS (5)
  - Neoplasm malignant [Unknown]
  - Dyspepsia [Unknown]
  - Nausea [Unknown]
  - Gastric pH decreased [Unknown]
  - Headache [Unknown]

NARRATIVE: CASE EVENT DATE: 20220301
